FAERS Safety Report 22379426 (Version 3)
Quarter: 2023Q4

REPORT INFORMATION
  Report Type: Spontaneous
  Country: PS (occurrence: PS)
  Receive Date: 20230529
  Receipt Date: 20231017
  Transmission Date: 20240110
  Serious: Yes (Life-Threatening, Disabling, Other)
  Sender: FDA-Public Use
  Company Number: PS-PFIZER INC-PV202300093579

PATIENT
  Age: 58 Year
  Sex: Female
  Weight: 100 kg

DRUGS (5)
  1. DEPO-MEDROL [Suspect]
     Active Substance: METHYLPREDNISOLONE ACETATE
     Indication: Back pain
     Dosage: 80 MG, 1X/DAY (SINGLE DOSE)
     Route: 030
     Dates: start: 20230521, end: 20230521
  2. NORVASC [Concomitant]
     Active Substance: AMLODIPINE BESYLATE
     Indication: Hypertension
     Dosage: UNK (DURATION OF TREATMENT: LIFETIME)
  3. XOLAIR [Concomitant]
     Active Substance: OMALIZUMAB
     Indication: Seasonal allergy
     Dosage: UNK (DURATION OF TREATMENT: LIFETIME)
  4. XOLAIR [Concomitant]
     Active Substance: OMALIZUMAB
     Indication: Nasal polyps
  5. XOLAIR [Concomitant]
     Active Substance: OMALIZUMAB
     Indication: Asthma

REACTIONS (7)
  - Dizziness [Recovered/Resolved]
  - Amnesia [Recovered/Resolved]
  - Hypertension [Recovered/Resolved]
  - Chest pain [Recovered/Resolved]
  - Dyspnoea [Recovered/Resolved]
  - Tachycardia [Recovered/Resolved]
  - Off label use [Unknown]

NARRATIVE: CASE EVENT DATE: 20230521
